FAERS Safety Report 24103256 (Version 2)
Quarter: 2025Q3

REPORT INFORMATION
  Report Type: Spontaneous
  Country: CA (occurrence: CA)
  Receive Date: 20240717
  Receipt Date: 20250927
  Transmission Date: 20251020
  Serious: Yes (Hospitalization, Other)
  Sender: ALEXION PHARMACEUTICALS
  Company Number: 2020SF37869

PATIENT
  Age: 55 Year
  Sex: Female

DRUGS (9)
  1. SYMBICORT [Suspect]
     Active Substance: BUDESONIDE\FORMOTEROL FUMARATE DIHYDRATE
     Indication: Product used for unknown indication
     Dosage: 2 DF TWO TIMES A DAY
  2. NASONEX [Suspect]
     Active Substance: MOMETASONE FUROATE
     Indication: Product used for unknown indication
  3. ALBUTEROL SULFATE [Suspect]
     Active Substance: ALBUTEROL SULFATE
     Indication: Product used for unknown indication
  4. VITAMIN C [Suspect]
     Active Substance: ASCORBIC ACID
  5. PREDNISONE [Suspect]
     Active Substance: PREDNISONE
  6. ZINC GLUCONATE [Suspect]
     Active Substance: ZINC GLUCONATE
  7. TYLENOL [Suspect]
     Active Substance: ACETAMINOPHEN
  8. ATROVENT [Suspect]
     Active Substance: IPRATROPIUM BROMIDE
  9. MOMETASONE [Suspect]
     Active Substance: MOMETASONE

REACTIONS (42)
  - Cerebrovascular accident [Unknown]
  - Confusional state [Unknown]
  - Diarrhoea [Unknown]
  - Dyspnoea [Unknown]
  - Hypoaesthesia [Unknown]
  - NSAID exacerbated respiratory disease [Unknown]
  - Asthma [Unknown]
  - Blood test abnormal [Unknown]
  - Loss of personal independence in daily activities [Unknown]
  - Wheezing [Unknown]
  - Therapeutic product effect incomplete [Unknown]
  - Pleural effusion [Unknown]
  - Pericardial effusion [Unknown]
  - Cardiac ventricular thrombosis [Unknown]
  - Full blood count abnormal [Unknown]
  - Hypereosinophilic syndrome [Unknown]
  - Hypotension [Unknown]
  - Dyspnoea exertional [Unknown]
  - Chest pain [Unknown]
  - Eosinophilic myocarditis [Unknown]
  - Cough [Unknown]
  - Pyrexia [Unknown]
  - Chills [Unknown]
  - Night sweats [Unknown]
  - Myopericarditis [Unknown]
  - Myelosuppression [Unknown]
  - Bone marrow eosinophilic leukocyte count increased [Unknown]
  - Condition aggravated [Unknown]
  - Chest discomfort [Unknown]
  - Helicobacter infection [Unknown]
  - Cardiac ventricular thrombosis [Unknown]
  - Nasal polyps [Unknown]
  - Urinary tract infection [Unknown]
  - Productive cough [Unknown]
  - Uterine leiomyoma [Unknown]
  - Wheezing [Unknown]
  - Illness [Unknown]
  - Weight decreased [Unknown]
  - Sputum discoloured [Unknown]
  - Sleep disorder due to a general medical condition [Unknown]
  - Therapeutic product effect incomplete [Unknown]
  - Viral hepatitis carrier [Unknown]
